FAERS Safety Report 9142345 (Version 1)
Quarter: 2013Q1

REPORT INFORMATION
  Report Type: Report from Study
  Country: PL (occurrence: PL)
  Receive Date: 20130306
  Receipt Date: 20130306
  Transmission Date: 20140127
  Serious: Yes (Hospitalization)
  Sender: FDA-Public Use
  Company Number: PL-009507513-1301POL009832

PATIENT
  Age: 43 Year
  Sex: Male
  Weight: 73 kg

DRUGS (6)
  1. BOCEPREVIR [Suspect]
     Indication: CHRONIC HEPATITIS C
     Dosage: 2400MG, QD
     Route: 048
     Dates: start: 20121126, end: 20130110
  2. BOCEPREVIR [Suspect]
     Dosage: 2400MG, QD
     Route: 048
     Dates: start: 20130111, end: 20130121
  3. RIBAVIRIN [Suspect]
     Indication: CHRONIC HEPATITIS C
     Dosage: 1200 MG DAILY
     Route: 048
     Dates: start: 20121029, end: 20130110
  4. RIBAVIRIN [Suspect]
     Dosage: UNK, QD
     Route: 048
     Dates: start: 20130111
  5. PEGINTERFERON ALFA-2A [Suspect]
     Indication: CHRONIC HEPATITIS C
     Dosage: 180 MICROGRAM, QW
     Route: 058
     Dates: start: 20121029, end: 20130114
  6. PEGINTERFERON ALFA-2A [Suspect]
     Dosage: 180 MICROGRAM, QW
     Route: 058
     Dates: start: 20130204

REACTIONS (1)
  - Granulocytopenia [Recovered/Resolved]
